FAERS Safety Report 14583596 (Version 2)
Quarter: 2018Q1

REPORT INFORMATION
  Report Type: Spontaneous
  Country: JP (occurrence: JP)
  Receive Date: 20180228
  Receipt Date: 20180321
  Transmission Date: 20180509
  Serious: Yes (Hospitalization)
  Sender: FDA-Public Use
  Company Number: JP-PFIZER INC-2018055747

PATIENT
  Age: 85 Year
  Sex: Male

DRUGS (2)
  1. CELECOX [Suspect]
     Active Substance: CELECOXIB
     Indication: PAIN MANAGEMENT
     Dosage: UNK
     Route: 048
  2. LOXOPROFEN /00890702/ [Suspect]
     Active Substance: LOXOPROFEN
     Indication: PAIN MANAGEMENT
     Dosage: UNK
     Route: 048
     Dates: end: 201712

REACTIONS (1)
  - Mallory-Weiss syndrome [Recovered/Resolved]
